FAERS Safety Report 24631834 (Version 1)
Quarter: 2024Q4

REPORT INFORMATION
  Report Type: Spontaneous
  Country: US (occurrence: None)
  Receive Date: 20241118
  Receipt Date: 20241118
  Transmission Date: 20250115
  Serious: Yes (Other)
  Sender: Public
  Company Number: None

PATIENT
  Age: 16 Year
  Sex: Male
  Weight: 68 kg

DRUGS (4)
  1. ARIPIPRAZOLE [Suspect]
     Active Substance: ARIPIPRAZOLE
     Indication: Bipolar II disorder
     Dosage: 10 MG DAILY ORAL
     Route: 048
     Dates: start: 20241112
  2. LEXAPRO [Concomitant]
     Active Substance: ESCITALOPRAM OXALATE
     Dates: start: 20241108
  3. Guanfacine ER 4 mg [Concomitant]
     Dates: start: 20241107
  4. Focalin XR 20 mg [Concomitant]
     Dates: start: 20241108

REACTIONS (1)
  - Muscle twitching [None]

NARRATIVE: CASE EVENT DATE: 20241115
